FAERS Safety Report 16368857 (Version 1)
Quarter: 2019Q2

REPORT INFORMATION
  Report Type: Spontaneous
  Country: DE (occurrence: DE)
  Receive Date: 20190529
  Receipt Date: 20190529
  Transmission Date: 20190711
  Serious: Yes (Hospitalization)
  Sender: FDA-Public Use
  Company Number: DE-PFIZER INC-2019221978

PATIENT
  Age: 3 Year
  Sex: Male
  Weight: 12 kg

DRUGS (4)
  1. D-FLUORETTEN [COLECALCIFEROL;SODIUM FLUORIDE] [Concomitant]
     Dosage: 500 IU, UNK
     Route: 048
  2. L-THYROX [Concomitant]
     Active Substance: LEVOTHYROXINE SODIUM
     Dosage: 37.5 UG, UNK
     Route: 048
  3. HYDROCORTISON [Suspect]
     Active Substance: HYDROCORTISONE
     Indication: ABDOMINAL DISCOMFORT
     Dosage: UNK
     Route: 048
  4. CIRCADIN [Concomitant]
     Active Substance: MELATONIN
     Dosage: 2 MG, UNK
     Route: 048

REACTIONS (4)
  - Product dose omission [Recovered/Resolved]
  - Product administration error [Recovered/Resolved]
  - Hypoglycaemia [Recovered/Resolved]
  - General physical health deterioration [Recovered/Resolved]

NARRATIVE: CASE EVENT DATE: 20181127
